FAERS Safety Report 22242251 (Version 6)
Quarter: 2023Q2

REPORT INFORMATION
  Report Type: Report from Study
  Country: ES (occurrence: None)
  Receive Date: 20230422
  Receipt Date: 20230530
  Transmission Date: 20230721
  Serious: Yes (Hospitalization)
  Sender: FDA-Public Use
  Company Number: ES-ROCHE-3334031

PATIENT
  Age: 74 Year
  Sex: Male
  Weight: 68.9 kg

DRUGS (5)
  1. TIRAGOLUMAB [Suspect]
     Active Substance: TIRAGOLUMAB
     Indication: Laryngeal cancer metastatic
     Dosage: ON 08/MAR/2023, MOST RECENT DOSE OF STUDY DRUG PRIOR TO AE/SAE WAS GIVEN
     Route: 042
     Dates: start: 20220427
  2. ATEZOLIZUMAB [Suspect]
     Active Substance: ATEZOLIZUMAB
     Indication: Laryngeal cancer metastatic
     Dosage: ON 08/MAR/2023, MOST RECENT DOSE 1200 MG OF ATEZOLIZUMAB PRIOR TO AE/SAE WAS GIVEN
     Route: 041
     Dates: start: 20220427
  3. FAMOTIDINE [Concomitant]
     Active Substance: FAMOTIDINE
     Indication: Hiatus hernia
     Route: 048
     Dates: start: 20220621
  4. METOCLOPRAMIDE [Concomitant]
     Active Substance: METOCLOPRAMIDE
     Indication: Nausea
     Route: 048
     Dates: start: 20230422
  5. LEUCOVORIN [Concomitant]
     Active Substance: LEUCOVORIN
     Route: 048
     Dates: start: 20230422, end: 20230426

REACTIONS (1)
  - Gastritis [Not Recovered/Not Resolved]

NARRATIVE: CASE EVENT DATE: 20230308
